FAERS Safety Report 26165067 (Version 1)
Quarter: 2025Q4

REPORT INFORMATION
  Report Type: Spontaneous
  Country: US (occurrence: US)
  Receive Date: 20251216
  Receipt Date: 20251216
  Transmission Date: 20260117
  Serious: No
  Sender: BRAEBURN PHARMACEUTICALS
  Company Number: US-BRAEBURN PHARMACEUTICALS-US-BRA-25-000759

PATIENT
  Sex: Male
  Weight: 92.562 kg

DRUGS (1)
  1. BRIXADI [Suspect]
     Active Substance: BUPRENORPHINE
     Indication: Drug dependence
     Dosage: 128 MILLIGRAM, (EVERY 28 DAYS)
     Route: 058

REACTIONS (2)
  - Injection site pain [Recovered/Resolved]
  - Injection site hypoaesthesia [Unknown]
